FAERS Safety Report 6453372-0 (Version None)
Quarter: 2009Q4

REPORT INFORMATION
  Report Type: 
  Country: None (occurrence: None)
  Receive Date: 20091123
  Receipt Date: 20091123
  Transmission Date: 20100525
  Serious: No
  Sender: FDA-Public Use
  Company Number: None

PATIENT
  Age: 19 Year
  Sex: Male
  Weight: 58.9676 kg

DRUGS (4)
  1. ABILIFY [Suspect]
     Indication: CONFUSIONAL STATE
     Dosage: 15 MG ONCE PER DAY PO
     Route: 048
     Dates: start: 20021201, end: 20050401
  2. ABILIFY -ARIPIPRAZOLE- 20 MG [Suspect]
     Indication: CONFUSIONAL STATE
     Dosage: 20 MG ONCE PER DAY PO
     Route: 048
     Dates: start: 20051001, end: 20090501
  3. STRATTERA [Concomitant]
  4. ZYRTEC [Concomitant]

REACTIONS (3)
  - AGITATION [None]
  - AKATHISIA [None]
  - IRRITABILITY [None]
